FAERS Safety Report 20338713 (Version 1)
Quarter: 2022Q1

REPORT INFORMATION
  Report Type: Spontaneous
  Country: US (occurrence: US)
  Receive Date: 20220116
  Receipt Date: 20220116
  Transmission Date: 20220424
  Serious: No
  Sender: FDA-Public Use
  Company Number: US-SA-SAC20220107000442

PATIENT
  Sex: Female

DRUGS (1)
  1. LUMIZYME [Suspect]
     Active Substance: ALGLUCOSIDASE ALFA
     Indication: Glycogen storage disease type II
     Route: 041

REACTIONS (4)
  - Hepatomegaly [Unknown]
  - Hepatic enzyme increased [Unknown]
  - Malaise [Unknown]
  - Product preparation error [Unknown]

NARRATIVE: CASE EVENT DATE: 20210105
